FAERS Safety Report 17641483 (Version 3)
Quarter: 2020Q2

REPORT INFORMATION
  Report Type: Report from Study
  Country: None (occurrence: JP)
  Receive Date: 20200407
  Receipt Date: 20200501
  Transmission Date: 20200713
  Serious: Yes (Hospitalization)
  Sender: FDA-Public Use
  Company Number: JP-ABBVIE-20P-087-3343364-00

PATIENT
  Age: 82 Year
  Sex: Male
  Weight: 47.4 kg

DRUGS (28)
  1. VENETOCLAX. [Suspect]
     Active Substance: VENETOCLAX
     Route: 048
     Dates: start: 20181127, end: 20181127
  2. VENETOCLAX. [Suspect]
     Active Substance: VENETOCLAX
     Route: 048
     Dates: start: 20181222, end: 20190106
  3. RINDERON VG [Concomitant]
     Active Substance: BETAMETHASONE VALERATE\GENTAMICIN SULFATE
     Indication: DRY SKIN
     Dosage: ADEQUATE DOSE
     Route: 062
     Dates: start: 20190930
  4. LEVOFLOXACIN TABLETS [Concomitant]
     Active Substance: LEVOFLOXACIN
     Indication: ANTIBIOTIC PROPHYLAXIS
     Route: 048
     Dates: start: 20191219
  5. RESTAMIN KOWA CREAM 1% [Concomitant]
     Indication: DRUG ERUPTION
  6. SODIUM PICOSULFATE HYDRATE [Concomitant]
     Active Substance: SODIUM PICOSULFATE
     Indication: CONSTIPATION
     Route: 048
     Dates: start: 20190701
  7. VENETOCLAX. [Suspect]
     Active Substance: VENETOCLAX
     Indication: ACUTE MYELOID LEUKAEMIA
     Route: 048
     Dates: start: 20181126, end: 20181126
  8. VENETOCLAX. [Suspect]
     Active Substance: VENETOCLAX
     Route: 048
     Dates: start: 20181128, end: 20181221
  9. VENETOCLAX. [Suspect]
     Active Substance: VENETOCLAX
     Route: 048
     Dates: start: 20190212, end: 20200120
  10. VENETOCLAX. [Suspect]
     Active Substance: VENETOCLAX
     Route: 048
     Dates: start: 20200122
  11. MIYA-BM [Concomitant]
     Active Substance: CLOSTRIDIUM BUTYRICUM SPORES STRAIN M-55
     Indication: INFECTION PROPHYLAXIS
     Route: 048
     Dates: start: 20181113
  12. MAGNESIUM OXIDE TABLETS [Concomitant]
     Indication: CONSTIPATION
     Route: 048
     Dates: start: 20181113
  13. CALONAL TAB 500 [Concomitant]
     Indication: BACK PAIN
     Route: 048
     Dates: start: 20190104
  14. XYLOCAINE [Concomitant]
     Active Substance: LIDOCAINE HYDROCHLORIDE
     Indication: PROPHYLAXIS
  15. AZACITIDINE. [Suspect]
     Active Substance: AZACITIDINE
     Indication: ACUTE MYELOID LEUKAEMIA
     Dosage: DAYS 1-7 OF 28 DAY CYCLE
     Route: 058
     Dates: start: 20181126, end: 20190815
  16. AZACITIDINE. [Suspect]
     Active Substance: AZACITIDINE
     Dosage: DAYS 1-7 OF 28 DAY CYCLE
     Route: 058
     Dates: start: 20190930, end: 20200112
  17. AZACITIDINE. [Suspect]
     Active Substance: AZACITIDINE
     Dosage: DAYS 1-7 OF 28 DAY CYCLE
     Route: 058
     Dates: start: 20200304
  18. YD SOLITA-T NO1 [Concomitant]
     Indication: PROPHYLAXIS
     Route: 042
     Dates: start: 20181125, end: 20181201
  19. HIRUDOID LOTION [Concomitant]
     Dosage: ADEQUATE DOSE
     Route: 062
     Dates: start: 20190908
  20. LOCOID CREAM 0.1% [Concomitant]
     Indication: DRY SKIN
     Dosage: DOSE: Q.S OINTMENT
     Route: 061
     Dates: start: 20190104
  21. FLUCONAZOLE. [Concomitant]
     Active Substance: FLUCONAZOLE
     Indication: ANTIFUNGAL PROPHYLAXIS
     Route: 048
     Dates: start: 20190111
  22. MOHRUS PAP XR [Concomitant]
     Active Substance: KETOPROFEN
     Indication: SCIATICA
     Route: 062
     Dates: start: 20190515
  23. VENETOCLAX. [Suspect]
     Active Substance: VENETOCLAX
     Route: 048
     Dates: start: 20200121, end: 20200121
  24. XYLOCAINE [Concomitant]
     Active Substance: LIDOCAINE HYDROCHLORIDE
     Indication: STOMATITIS
     Dates: start: 20190125
  25. RESTAMIN KOWA CREAM 1% [Concomitant]
     Indication: PROPHYLAXIS
     Dosage: DOSE: Q.S
     Route: 061
     Dates: start: 20190104
  26. TAKECAB TABLETS [Concomitant]
     Indication: CHRONIC GASTRITIS
     Route: 048
     Dates: start: 20191218
  27. VENETOCLAX. [Suspect]
     Active Substance: VENETOCLAX
     Route: 048
     Dates: start: 20190107, end: 20190121
  28. HIRUDOID LOTION [Concomitant]
     Indication: DRY SKIN
     Dosage: DOSE: AP LIBITUM
     Route: 061
     Dates: start: 20181114

REACTIONS (2)
  - Decreased appetite [Not Recovered/Not Resolved]
  - Abdominal pain upper [Not Recovered/Not Resolved]

NARRATIVE: CASE EVENT DATE: 20200329
